FAERS Safety Report 6087485-2 (Version None)
Quarter: 2009Q1

REPORT INFORMATION
  Report Type: 
  Country: None (occurrence: None)
  Receive Date: 20090219
  Receipt Date: 20081218
  Transmission Date: 20090719
  Serious: No
  Sender: FDA-Public Use
  Company Number: WAES 0812USA04123

PATIENT
  Age: 57 Year
  Sex: Male

DRUGS (15)
  1. JANUVIA [Suspect]
     Indication: DIABETES MELLITUS
     Dosage: 50 MG/DAILY/PO; 100 MG/DAILY/PO
     Route: 048
  2. METFORMIN HCL [Suspect]
  3. CRESTOR [Concomitant]
  4. LOVAZA [Concomitant]
  5. ZETIA [Concomitant]
  6. ALLOPURINOL [Concomitant]
  7. ASPIRIN [Concomitant]
  8. CANDESARTAN [Concomitant]
  9. CARVEDILOL [Concomitant]
  10. DIGOXIN [Concomitant]
  11. ESCITALOPRAM [Concomitant]
  12. LANSOPRAZOLE [Concomitant]
  13. SOTALOL HCL [Concomitant]
  14. WARFARIN SODIUM [Concomitant]
  15. ZOLPIDEM TARTRATE [Concomitant]

REACTIONS (1)
  - WEIGHT INCREASED [None]
